FAERS Safety Report 9468304 (Version 2)
Quarter: 2013Q3

REPORT INFORMATION
  Report Type: Spontaneous
  Country: IE (occurrence: IE)
  Receive Date: 20130821
  Receipt Date: 20130821
  Transmission Date: 20140515
  Serious: Yes (Hospitalization, Other)
  Sender: FDA-Public Use
  Company Number: IE-TEVA-391689ISR

PATIENT
  Age: 65 Year
  Sex: Male

DRUGS (7)
  1. EFFENTORA [Suspect]
     Indication: CANCER PAIN
     Dosage: MAX OF X4 DAILY
     Route: 002
     Dates: start: 20130412
  2. EFFENTORA [Suspect]
     Dosage: BETWEEN 5-6 TIMES IN 24HOURS. WAS ADVISED TO TAKE MAXIMUM OF X4 DAILY
     Route: 002
     Dates: start: 201210, end: 20130412
  3. EFFENTORA [Suspect]
     Dosage: DOSE WAS ESCALATED FROM 200MCG TO 800 MCG
     Route: 002
  4. EFFENTORA [Suspect]
     Dosage: DOSE WAS ESCALATED FROM 200MCG TO 800 MCG
     Route: 002
     Dates: start: 201204
  5. DUROGESIC [Suspect]
  6. MST [Suspect]
  7. METHADONE [Concomitant]
     Indication: PAIN MANAGEMENT

REACTIONS (5)
  - Drug dependence [Not Recovered/Not Resolved]
  - Sepsis [Unknown]
  - Disease progression [Unknown]
  - Euphoric mood [Unknown]
  - Intentional overdose [Unknown]
